FAERS Safety Report 4300566-6 (Version None)
Quarter: 2004Q1

REPORT INFORMATION
  Report Type: 
  Country: None (occurrence: None)
  Receive Date: 20040219
  Receipt Date: 20040219
  Transmission Date: 20041129
  Serious: Yes (Hospitalization)
  Sender: FDA-Public Use
  Company Number: None

PATIENT
  Age: 53 Year
  Sex: Male

DRUGS (6)
  1. SOMA [Suspect]
  2. OXYCODONE HCL [Concomitant]
  3. MORPHINE [Concomitant]
  4. TRAMADOL [Concomitant]
  5. FELODIPINE [Concomitant]
  6. HYDROCHLOROTHIAZIDE [Concomitant]

REACTIONS (2)
  - INTENTIONAL OVERDOSE [None]
  - MENTAL STATUS CHANGES [None]
